FAERS Safety Report 4667352-9 (Version None)
Quarter: 2005Q2

REPORT INFORMATION
  Report Type: 
  Country: None (occurrence: None)
  Receive Date: 20050519
  Receipt Date: 20050519
  Transmission Date: 20051028
  Serious: No
  Sender: FDA-Public Use
  Company Number: None

PATIENT
  Age: 77 Year
  Sex: Male

DRUGS (8)
  1. TERAZOCIN 2MG [Suspect]
     Indication: BENIGN PROSTATIC HYPERPLASIA
     Dosage: 1 OR 2 CAPS AT BEDTIME WHEN NEEDED (TAKING TWO CAPS - 4MG)
  2. TERAZOCIN 2MG [Suspect]
     Indication: URINARY TRACT DISORDER
     Dosage: 1 OR 2 CAPS AT BEDTIME WHEN NEEDED (TAKING TWO CAPS - 4MG)
  3. PAXIL [Concomitant]
  4. UNIVASC [Concomitant]
  5. GLUCOVANCE [Concomitant]
  6. ACTOS [Concomitant]
  7. LOVASTATIN [Concomitant]
  8. DIOVAN [Concomitant]

REACTIONS (2)
  - DRUG INEFFECTIVE [None]
  - PHARMACEUTICAL PRODUCT COMPLAINT [None]
